FAERS Safety Report 6096522-0 (Version None)
Quarter: 2009Q1

REPORT INFORMATION
  Report Type: 
  Country: None (occurrence: None)
  Receive Date: 20090225
  Receipt Date: 20090219
  Transmission Date: 20090719
  Serious: Yes (Other)
  Sender: FDA-Public Use
  Company Number: 2009SP001526

PATIENT
  Age: 64 Year
  Sex: Male
  Weight: 60 kg

DRUGS (6)
  1. TEMODAL [Suspect]
     Indication: GLIOBLASTOMA MULTIFORME
     Dosage: 300 MG;QD;PO
     Route: 048
     Dates: start: 20090113, end: 20090117
  2. MOBIC [Concomitant]
  3. RIVOTRIL [Concomitant]
  4. GASMOTIN [Concomitant]
  5. MAGMITT [Concomitant]
  6. OXYCONTIN [Concomitant]

REACTIONS (1)
  - PNEUMONIA [None]
